FAERS Safety Report 7564716-0 (Version None)
Quarter: 2011Q2

REPORT INFORMATION
  Report Type: 
  Country: None (occurrence: None)
  Receive Date: 20110622
  Receipt Date: 20101013
  Transmission Date: 20111010
  Serious: Yes (Death)
  Sender: FDA-Public Use
  Company Number: US-MYLANLABS-2010S1017466

PATIENT
  Age: 71 Year
  Sex: Male

DRUGS (5)
  1. CLOZAPINE [Suspect]
     Indication: DEMENTIA
     Dates: start: 20061004, end: 20100101
  2. ARICEPT [Concomitant]
  3. AZILECT [Concomitant]
  4. STALEVO 100 [Concomitant]
  5. MIRAPEX [Concomitant]

REACTIONS (1)
  - DEATH [None]
